FAERS Safety Report 18995347 (Version 3)
Quarter: 2021Q3

REPORT INFORMATION
  Report Type: Spontaneous
  Country: US (occurrence: US)
  Receive Date: 20210311
  Receipt Date: 20210726
  Transmission Date: 20211014
  Serious: Yes (Other)
  Sender: FDA-Public Use
  Company Number: US-DECIPHERA PHARMACEUTICALS LLC-2020-US-000711

PATIENT
  Sex: Male

DRUGS (2)
  1. QINLOCK [Suspect]
     Active Substance: RIPRETINIB
     Indication: GASTROINTESTINAL STROMAL TUMOUR
     Dosage: 100 MILLIGRAM, QD
     Route: 048
     Dates: start: 20201110, end: 2020
  2. QINLOCK [Suspect]
     Active Substance: RIPRETINIB
     Dosage: 150 MILLIGRAM, QD
     Route: 048
     Dates: start: 20201222

REACTIONS (6)
  - Autoimmune haemolytic anaemia [Recovering/Resolving]
  - Hyperhidrosis [Unknown]
  - Pyrexia [Unknown]
  - Transfusion reaction [Unknown]
  - Blood iron decreased [Unknown]
  - Pain [Unknown]
